FAERS Safety Report 23675788 (Version 2)
Quarter: 2024Q2

REPORT INFORMATION
  Report Type: Spontaneous
  Country: US (occurrence: US)
  Receive Date: 20240327
  Receipt Date: 20240411
  Transmission Date: 20240716
  Serious: Yes (Other)
  Sender: FDA-Public Use
  Company Number: US-ALK-ABELLO A/S-2024AA001305

PATIENT

DRUGS (10)
  1. PHLEUM PRATENSE POLLEN [Suspect]
     Active Substance: PHLEUM PRATENSE POLLEN
     Indication: Skin test
     Dosage: UNK
     Route: 023
     Dates: start: 20240318
  2. CYNODON DACTYLON POLLEN [Suspect]
     Active Substance: CYNODON DACTYLON POLLEN
     Indication: Skin test
     Dosage: UNK
     Route: 023
     Dates: start: 20240318
  3. SORGHUM HALEPENSE POLLEN [Suspect]
     Active Substance: SORGHUM HALEPENSE POLLEN
     Indication: Skin test
     Dosage: UNK
     Route: 023
     Dates: start: 20240318
  4. XANTHIUM STRUMARIUM POLLEN [Suspect]
     Active Substance: XANTHIUM STRUMARIUM POLLEN
     Indication: Skin test
     Dosage: UNK
     Route: 023
     Dates: start: 20240318
  5. CHENOPODIUM ALBUM POLLEN [Suspect]
     Active Substance: CHENOPODIUM ALBUM POLLEN
     Indication: Skin test
     Dosage: UNK
     Route: 023
     Dates: start: 20240318
  6. IVA XANTHIFOLIA POLLEN [Suspect]
     Active Substance: CYCLACHAENA XANTHIFOLIA POLLEN
     Indication: Skin test
     Dosage: UNK
     Route: 023
     Dates: start: 20240318
  7. AMARANTHUS RETROFLEXUS POLLEN [Suspect]
     Active Substance: AMARANTHUS RETROFLEXUS POLLEN
     Indication: Skin test
     Dosage: UNK
     Route: 023
     Dates: start: 20240318
  8. PLANTAGO LANCEOLATA POLLEN [Suspect]
     Active Substance: PLANTAGO LANCEOLATA POLLEN
     Indication: Skin test
     Dosage: UNK
     Route: 023
     Dates: start: 20240318
  9. RUMEX ACETOSELLA POLLEN [Suspect]
     Active Substance: RUMEX ACETOSELLA POLLEN
     Indication: Skin test
     Dosage: UNK
     Route: 023
     Dates: start: 20240318
  10. DERMATOPHAGOIDES PTERONYSSINUS [Suspect]
     Active Substance: DERMATOPHAGOIDES PTERONYSSINUS
     Indication: Skin test
     Dosage: UNK
     Route: 023
     Dates: start: 20240318

REACTIONS (1)
  - Anaphylactic reaction [Recovered/Resolved]

NARRATIVE: CASE EVENT DATE: 20240318
